FAERS Safety Report 25847072 (Version 2)
Quarter: 2025Q4

REPORT INFORMATION
  Report Type: Spontaneous
  Country: EU (occurrence: EU)
  Receive Date: 20250925
  Receipt Date: 20251013
  Transmission Date: 20260118
  Serious: Yes (Other)
  Sender: SANOFI AVENTIS
  Company Number: EU-SA-2025SA286447

PATIENT
  Age: 64 Year
  Sex: Female

DRUGS (1)
  1. DUPIXENT [Suspect]
     Active Substance: DUPILUMAB
     Indication: Polyp
     Dosage: 300 MG
     Dates: start: 20220428, end: 20250701

REACTIONS (11)
  - Arrhythmia [Recovering/Resolving]
  - Right ventricular failure [Recovering/Resolving]
  - Tachycardia [Recovering/Resolving]
  - Dyspnoea exertional [Recovering/Resolving]
  - Pericardial effusion [Recovering/Resolving]
  - Cardiomegaly [Recovering/Resolving]
  - Ejection fraction abnormal [Recovering/Resolving]
  - Tricuspid valve incompetence [Recovering/Resolving]
  - Cardiomyopathy [Recovering/Resolving]
  - Myocardial oedema [Recovering/Resolving]
  - Product use in unapproved indication [Unknown]

NARRATIVE: CASE EVENT DATE: 20220428
